FAERS Safety Report 5211483-1 (Version None)
Quarter: 2006Q4

REPORT INFORMATION
  Report Type: 
  Country: None (occurrence: None)
  Receive Date: 20061115
  Receipt Date: 20060725
  Transmission Date: 20070319
  Serious: No
  Sender: FDA-Public Use
  Company Number: 200614905BWH

PATIENT
  Age: 58 Year
  Sex: Male
  Weight: 83.0083 kg

DRUGS (3)
  1. NEXAVAR [Suspect]
     Indication: METASTATIC RENAL CELL CARCINOMA
     Dosage: 400 MG, BID, ORAL
     Route: 048
     Dates: start: 20060710
  2. CLONIDINE [Concomitant]
  3. STEROIDS (NOS) [Concomitant]

REACTIONS (3)
  - AGEUSIA [None]
  - ANOREXIA [None]
  - HYPOGEUSIA [None]
